FAERS Safety Report 7753719-9 (Version None)
Quarter: 2011Q3

REPORT INFORMATION
  Report Type: 
  Country: None (occurrence: None)
  Receive Date: 20110915
  Receipt Date: 20110915
  Transmission Date: 20111222
  Serious: Yes (Other)
  Sender: FDA-Public Use
  Company Number: None

PATIENT
  Age: 68 Year
  Sex: Male
  Weight: 77.11 kg

DRUGS (2)
  1. VERPAMIL HCL [Concomitant]
     Dosage: 1 TABLET
     Route: 048
     Dates: start: 20110718, end: 20110901
  2. VERPAMIL HCL [Suspect]
     Indication: HYPERTENSION
     Dosage: 1 TABLET
     Route: 048
     Dates: start: 20110616, end: 20110717

REACTIONS (3)
  - PRODUCT SUBSTITUTION ISSUE [None]
  - BLOOD PRESSURE INADEQUATELY CONTROLLED [None]
  - AMNESIA [None]
